FAERS Safety Report 17895237 (Version 5)
Quarter: 2021Q2

REPORT INFORMATION
  Report Type: Spontaneous
  Country: IT (occurrence: IT)
  Receive Date: 20200615
  Receipt Date: 20210629
  Transmission Date: 20210717
  Serious: Yes (Life-Threatening, Hospitalization, Other)
  Sender: FDA-Public Use
  Company Number: NVSC2020IT165583

PATIENT
  Age: 14 Year
  Sex: Female

DRUGS (10)
  1. METHYLPREDNISOLONE. [Concomitant]
     Active Substance: METHYLPREDNISOLONE
     Indication: DIARRHOEA HAEMORRHAGIC
  2. PREDNISONE. [Concomitant]
     Active Substance: PREDNISONE
     Indication: COLITIS
     Dosage: 25 MILLIGRAM, QD
     Route: 065
  3. PREDNISONE. [Concomitant]
     Active Substance: PREDNISONE
     Indication: GASTROINTESTINAL DISORDER
     Dosage: 40 MILLIGRAM, QD
     Route: 065
  4. MESALAZINE [Suspect]
     Active Substance: MESALAMINE
     Indication: COLITIS
     Dosage: 800 MG, TID
     Route: 065
  5. CIPROFLOXACIN. [Concomitant]
     Active Substance: CIPROFLOXACIN
     Indication: DIARRHOEA HAEMORRHAGIC
  6. METRONIDAZOLE. [Concomitant]
     Active Substance: METRONIDAZOLE
     Indication: DIARRHOEA HAEMORRHAGIC
  7. MESALAZINE [Suspect]
     Active Substance: MESALAMINE
     Indication: PROCTITIS ULCERATIVE
  8. METHYLPREDNISOLONE. [Concomitant]
     Active Substance: METHYLPREDNISOLONE
     Indication: HENOCH-SCHONLEIN PURPURA
     Dosage: UNK
     Route: 042
  9. METRONIDAZOLE. [Concomitant]
     Active Substance: METRONIDAZOLE
     Indication: HENOCH-SCHONLEIN PURPURA
     Dosage: UNK
     Route: 065
  10. CIPROFLOXACIN. [Concomitant]
     Active Substance: CIPROFLOXACIN
     Indication: HENOCH-SCHONLEIN PURPURA
     Dosage: UNK
     Route: 065

REACTIONS (1)
  - Erythema multiforme [Recovered/Resolved]

NARRATIVE: CASE EVENT DATE: 20170524
